FAERS Safety Report 8835731 (Version 1)
Quarter: 2012Q4

REPORT INFORMATION
  Report Type: 
  Country: ES (occurrence: ES)
  Receive Date: 20121011
  Receipt Date: 20121011
  Transmission Date: 20130627
  Serious: Yes (Other)
  Sender: FDA-Public Use
  Company Number: PHHY2012ES088260

PATIENT
  Age: 40 Year
  Sex: Male

DRUGS (1)
  1. TASIGNA [Suspect]
     Indication: CHRONIC MYELOID LEUKAEMIA
     Dosage: 300 mg, BID
     Route: 048
     Dates: start: 20110901

REACTIONS (2)
  - Gene mutation identification test positive [Not Recovered/Not Resolved]
  - No therapeutic response [Not Recovered/Not Resolved]
